FAERS Safety Report 26065366 (Version 1)
Quarter: 2025Q4

REPORT INFORMATION
  Report Type: Spontaneous
  Country: EU (occurrence: EU)
  Receive Date: 20251119
  Receipt Date: 20251119
  Transmission Date: 20260118
  Serious: Yes (Life-Threatening, Hospitalization)
  Sender: NOVARTIS
  Company Number: None

PATIENT
  Age: 66 Year
  Sex: Female
  Weight: 92 kg

DRUGS (6)
  1. ARTEMETHER\LUMEFANTRINE [Suspect]
     Active Substance: ARTEMETHER\LUMEFANTRINE
     Indication: Cerebral malaria
     Dosage: 4 DOSAGE FORM (20 MG/120 MG, COMPRIM?)
     Route: 048
     Dates: start: 20251015, end: 20251015
  2. ARTEMETHER\LUMEFANTRINE [Suspect]
     Active Substance: ARTEMETHER\LUMEFANTRINE
     Dosage: 8 DOSAGE FORM, QD (4 CP X 2/JOUR)
     Route: 048
     Dates: start: 20251020, end: 20251022
  3. ARTESUNATE [Suspect]
     Active Substance: ARTESUNATE
     Indication: Cerebral malaria
     Dosage: 546 MG (228 MG X 2)
     Route: 042
     Dates: start: 20251013, end: 20251013
  4. ARTESUNATE [Suspect]
     Active Substance: ARTESUNATE
     Dosage: 235.44 MG, QD
     Route: 042
     Dates: start: 20251014, end: 20251014
  5. ARTESUNATE [Suspect]
     Active Substance: ARTESUNATE
     Dosage: 240 MG, QD
     Route: 042
     Dates: start: 20251015, end: 20251015
  6. ARTESUNATE [Suspect]
     Active Substance: ARTESUNATE
     Dosage: 220 MG, QD
     Route: 042
     Dates: start: 20251016, end: 20251019

REACTIONS (2)
  - Coombs positive haemolytic anaemia [Recovering/Resolving]
  - Cold type haemolytic anaemia [Recovering/Resolving]

NARRATIVE: CASE EVENT DATE: 20251023
